FAERS Safety Report 4980222-1 (Version None)
Quarter: 2006Q2

REPORT INFORMATION
  Report Type: 
  Country: None (occurrence: None)
  Receive Date: 20060424
  Receipt Date: 20060404
  Transmission Date: 20061013
  Serious: Yes (Other)
  Sender: FDA-Public Use
  Company Number: PHBS2006ZA05124

PATIENT
  Age: 59 Year
  Sex: Female
  Weight: 70.5 kg

DRUGS (5)
  1. ZOMETA [Suspect]
     Indication: BREAST CANCER METASTATIC
     Dosage: 4 MG EVERY 5 WEEKS
     Route: 042
     Dates: start: 20050225, end: 20060209
  2. ARIMIDEX [Concomitant]
  3. DURAGESIC-100 [Concomitant]
  4. LENTOGESIC [Concomitant]
  5. PANTOPRAZOLE SODIUM [Concomitant]
     Route: 065

REACTIONS (4)
  - FIBROSIS [None]
  - NEPHRITIS [None]
  - OSTEOMYELITIS [None]
  - OSTEONECROSIS [None]
